FAERS Safety Report 18702890 (Version 2)
Quarter: 2021Q1

REPORT INFORMATION
  Report Type: Spontaneous
  Country: US (occurrence: US)
  Receive Date: 20210105
  Receipt Date: 20210215
  Transmission Date: 20210419
  Serious: No
  Sender: FDA-Public Use
  Company Number: US-TAKEDA-2021TUS000020

PATIENT
  Sex: Male
  Weight: 83.9 kg

DRUGS (14)
  1. HYQVIA [Suspect]
     Active Substance: HUMAN IMMUNOGLOBULIN G\HYALURONIDASE RECOMBINANT HUMAN
     Indication: IMMUNODEFICIENCY COMMON VARIABLE
     Dosage: 40 GRAM, Q4WEEKS
     Route: 058
     Dates: start: 20200128
  2. LIDOCAINE. [Concomitant]
     Active Substance: LIDOCAINE
  3. LMX4 [Concomitant]
     Active Substance: LIDOCAINE
  4. VITAMIN D3 [Concomitant]
     Active Substance: CHOLECALCIFEROL
  5. NORMAL SALINE [Concomitant]
     Active Substance: SODIUM CHLORIDE
  6. GLUCOSAMINE CHONDROITIN [CHONDROITIN SULFATE;GLUCOSAMINE] [Concomitant]
  7. ACETAMINOPHEN. [Concomitant]
     Active Substance: ACETAMINOPHEN
  8. OMEGA 3?6?9 [FISH OIL] [Concomitant]
  9. HUMAN NORMAL IMMUNOGLOBULIN [Concomitant]
     Active Substance: HUMAN IMMUNOGLOBULIN G
  10. EPINEPHRINE. [Concomitant]
     Active Substance: EPINEPHRINE
  11. ASPIRIN EC [Concomitant]
     Active Substance: ASPIRIN
  12. CALCIUM [Concomitant]
     Active Substance: CALCIUM
  13. VITAMIN C [Concomitant]
     Active Substance: ASCORBIC ACID
  14. DIPHENHYDRAMINE. [Concomitant]
     Active Substance: DIPHENHYDRAMINE

REACTIONS (2)
  - Gout [Unknown]
  - COVID-19 [Unknown]
